FAERS Safety Report 22930561 (Version 4)
Quarter: 2023Q4

REPORT INFORMATION
  Report Type: Spontaneous
  Country: RU (occurrence: RU)
  Receive Date: 20230911
  Receipt Date: 20231024
  Transmission Date: 20240110
  Serious: Yes (Other)
  Sender: FDA-Public Use
  Company Number: RU-AMERICAN REGENT INC-2023002186

PATIENT
  Age: 28 Year
  Sex: Female
  Weight: 60 kg

DRUGS (1)
  1. FERINJECT [Suspect]
     Active Substance: FERRIC CARBOXYMALTOSE
     Indication: Iron deficiency anaemia
     Dosage: 100 MILLIGRAM DILUTED IN 100 ML OF NACL
     Dates: start: 20230825, end: 20230825

REACTIONS (8)
  - Asphyxia [Unknown]
  - Throat tightness [Unknown]
  - Fear of death [Unknown]
  - Product preparation issue [Unknown]
  - Dyspnoea [Unknown]
  - Erythema [Unknown]
  - Pyrexia [Unknown]
  - Product quality issue [Unknown]

NARRATIVE: CASE EVENT DATE: 20230825
